FAERS Safety Report 16713021 (Version 1)
Quarter: 2019Q3

REPORT INFORMATION
  Report Type: Spontaneous
  Country: EG (occurrence: EG)
  Receive Date: 20190817
  Receipt Date: 20190817
  Transmission Date: 20191004
  Serious: Yes (Other)
  Sender: FDA-Public Use
  Company Number: EG-ACCORD-151159

PATIENT
  Age: 53 Year
  Sex: Male

DRUGS (3)
  1. FLUOROURACIL. [Suspect]
     Active Substance: FLUOROURACIL
     Indication: COLON CANCER STAGE III
     Dosage: 2 WEEKS FOR 4 MONTHS
  2. FOLINIC ACID [Suspect]
     Active Substance: LEUCOVORIN
     Indication: COLON CANCER STAGE III
     Dosage: EVERY 2 WEEKS FOR 4 MONTHS
  3. OXALIPLATIN. [Suspect]
     Active Substance: OXALIPLATIN
     Indication: COLON CANCER STAGE III
     Dosage: EVERY 2 WEEKS FOR 4 MONTHS

REACTIONS (3)
  - Optic disc drusen [Unknown]
  - Cataract nuclear [Unknown]
  - Optic ischaemic neuropathy [Unknown]
